FAERS Safety Report 6087075-1 (Version None)
Quarter: 2009Q1

REPORT INFORMATION
  Report Type: 
  Country: None (occurrence: None)
  Receive Date: 20090219
  Receipt Date: 20090210
  Transmission Date: 20090719
  Serious: Yes (Hospitalization)
  Sender: FDA-Public Use
  Company Number: 2009S1000061

PATIENT
  Age: 83 Year
  Sex: Male

DRUGS (22)
  1. CUBICIN [Suspect]
     Indication: ENTEROCOCCAL INFECTION
     Dosage: 755 MG; QD; IV
     Route: 042
     Dates: start: 20090129
  2. CUBICIN [Suspect]
     Indication: STAPHYLOCOCCAL INFECTION
     Dosage: 755 MG; QD; IV
     Route: 042
     Dates: start: 20090129
  3. MULTI-VIT [Concomitant]
  4. PRILOSEC [Concomitant]
  5. K-DUR [Concomitant]
  6. PYRIDOXINE [Concomitant]
  7. ZOCOR [Concomitant]
  8. HYTRIN [Concomitant]
  9. ZINCATE [Concomitant]
  10. AMLODIPINE [Concomitant]
  11. ASCORBIC ACID [Concomitant]
  12. IRON [Concomitant]
  13. FOLIC ACID [Concomitant]
  14. COUMADIN [Concomitant]
  15. TYLENOL [Concomitant]
  16. RIFAMPIN [Concomitant]
  17. FEXOFENADINE [Concomitant]
  18. FLUTICASONE PROPIONATE [Concomitant]
  19. PSEUDOEPHEDRINE HCL [Concomitant]
  20. FUROSEMIDE [Concomitant]
  21. KENALOG [Concomitant]
  22. LOVENOX [Concomitant]

REACTIONS (1)
  - HAEMATEMESIS [None]
